FAERS Safety Report 15864527 (Version 2)
Quarter: 2019Q2

REPORT INFORMATION
  Report Type: Spontaneous
  Country: US (occurrence: US)
  Receive Date: 20190124
  Receipt Date: 20190517
  Transmission Date: 20190711
  Serious: Yes (Hospitalization, Other)
  Sender: FDA-Public Use
  Company Number: US-ELI_LILLY_AND_COMPANY-US201901011334

PATIENT
  Sex: Female
  Weight: 70.8 kg

DRUGS (1)
  1. VERZENIO [Suspect]
     Active Substance: ABEMACICLIB
     Indication: BREAST CANCER METASTATIC
     Dosage: 150 MG, BID
     Dates: start: 20171204, end: 20180906

REACTIONS (3)
  - Hyperbilirubinaemia [Recovered/Resolved]
  - Ascites [Recovered/Resolved]
  - Malignant neoplasm progression [Unknown]
